FAERS Safety Report 5360486-5 (Version None)
Quarter: 2007Q2

REPORT INFORMATION
  Report Type: 
  Country: None (occurrence: None)
  Receive Date: 20070618
  Receipt Date: 20070613
  Transmission Date: 20071010
  Serious: Yes (Life-Threatening)
  Sender: FDA-Public Use
  Company Number: B0451905A

PATIENT
  Age: 59 Year
  Sex: Female

DRUGS (5)
  1. PAXIL [Suspect]
     Indication: DEPRESSION
     Dosage: 20MG PER DAY
     Route: 048
     Dates: start: 20061201, end: 20061223
  2. RISPERDAL [Concomitant]
     Route: 048
  3. WYPAX [Concomitant]
     Route: 048
  4. TOLEDOMIN [Concomitant]
     Route: 048
  5. SILECE [Concomitant]
     Route: 048

REACTIONS (5)
  - ABASIA [None]
  - BRADYPHRENIA [None]
  - NEUROLEPTIC MALIGNANT SYNDROME [None]
  - PNEUMONIA [None]
  - PYREXIA [None]
